FAERS Safety Report 19171263 (Version 2)
Quarter: 2022Q4

REPORT INFORMATION
  Report Type: Report from Study
  Country: US (occurrence: US)
  Receive Date: 20210423
  Receipt Date: 20221028
  Transmission Date: 20230113
  Serious: Yes (Life-Threatening, Other)
  Sender: FDA-Public Use
  Company Number: US-ACADIA PHARMACEUTICALS INC.-ACA-2021-PIM-001227

PATIENT
  Sex: Male

DRUGS (3)
  1. NUPLAZID [Suspect]
     Active Substance: PIMAVANSERIN TARTRATE
     Indication: Parkinson^s disease
     Dosage: 34 MILLIGRAM, QD
     Route: 048
     Dates: start: 20210304
  2. NUPLAZID [Suspect]
     Active Substance: PIMAVANSERIN TARTRATE
     Indication: Hallucination
     Dosage: 34 MILLIGRAM, QD
     Route: 048
  3. NUPLAZID [Suspect]
     Active Substance: PIMAVANSERIN TARTRATE
     Indication: Delusion

REACTIONS (2)
  - Cerebrovascular accident [Not Recovered/Not Resolved]
  - Product dose omission issue [Unknown]
